FAERS Safety Report 6439857-1 (Version None)
Quarter: 2009Q4

REPORT INFORMATION
  Report Type: 
  Country: None (occurrence: None)
  Receive Date: 20091113
  Receipt Date: 20091111
  Transmission Date: 20100525
  Serious: Yes (Death)
  Sender: FDA-Public Use
  Company Number: IN-BRISTOL-MYERS SQUIBB COMPANY-14813521

PATIENT
  Age: 50 Year
  Sex: Male
  Weight: 53 kg

DRUGS (7)
  1. CARBOPLATIN [Suspect]
     Indication: NON-SMALL CELL LUNG CANCER
     Route: 042
     Dates: start: 20090821
  2. PACLITAXEL [Suspect]
     Indication: NON-SMALL CELL LUNG CANCER
     Route: 042
     Dates: start: 20090821
  3. CP-751,871 [Suspect]
     Indication: NON-SMALL CELL LUNG CANCER
     Dosage: CP-751 871 AT 1060 MG (53 ML), EVERY THREE WEEKS
     Route: 042
     Dates: start: 20090821
  4. DOMPERIDONE [Concomitant]
     Indication: VOMITING
     Dosage: TABLET
     Route: 048
     Dates: start: 20090821
  5. TRAMADOL HCL [Concomitant]
     Indication: PAIN
     Route: 048
     Dates: start: 20090821, end: 20090823
  6. FLUPHENAZINE DECANOATE [Concomitant]
     Indication: VOMITING
     Route: 048
     Dates: start: 20090821, end: 20090823
  7. PARACETAMOL [Concomitant]
     Indication: PAIN
     Route: 048
     Dates: start: 20090828

REACTIONS (1)
  - DEATH [None]
